FAERS Safety Report 7501789-5 (Version None)
Quarter: 2011Q2

REPORT INFORMATION
  Report Type: 
  Country: None (occurrence: None)
  Receive Date: 20110523
  Receipt Date: 20110523
  Transmission Date: 20111010
  Serious: Yes (Other)
  Sender: FDA-Public Use
  Company Number: None

PATIENT
  Age: 55 Year
  Sex: Female
  Weight: 54.4316 kg

DRUGS (2)
  1. ETODOLAC [Suspect]
     Indication: ANTIINFLAMMATORY THERAPY
     Dosage: 500 MG 2 X A DAY PO
     Route: 048
     Dates: start: 20110420, end: 20110518
  2. ETODOLAC [Suspect]
     Indication: SYNOVIAL CYST
     Dosage: 500 MG 2 X A DAY PO
     Route: 048
     Dates: start: 20110420, end: 20110518

REACTIONS (2)
  - CHROMATURIA [None]
  - URINE BILIRUBIN INCREASED [None]
